FAERS Safety Report 6014090-6 (Version None)
Quarter: 2008Q4

REPORT INFORMATION
  Report Type: 
  Country: None (occurrence: None)
  Receive Date: 20081219
  Receipt Date: 20080114
  Transmission Date: 20090506
  Serious: No
  Sender: FDA-Public Use
  Company Number: A0697264A

PATIENT
  Age: 64 Year
  Sex: Male

DRUGS (1)
  1. AVODART [Suspect]
     Indication: MICTURITION DISORDER
     Dosage: 5MG PER DAY
     Route: 048
     Dates: start: 20060501, end: 20071101

REACTIONS (4)
  - BLOOD BLISTER [None]
  - BREAST ENLARGEMENT [None]
  - PRURITUS [None]
  - SKIN HYPERTROPHY [None]
